FAERS Safety Report 9977964 (Version 2)
Quarter: 2014Q1

REPORT INFORMATION
  Report Type: Report from Study
  Country: US (occurrence: US)
  Receive Date: 20140306
  Receipt Date: 20140306
  Transmission Date: 20141002
  Serious: No
  Sender: FDA-Public Use
  Company Number: US-ABBVIE-12P-163-0974780-00

PATIENT
  Sex: Female
  Weight: 102.15 kg

DRUGS (1)
  1. HUMIRA [Suspect]
     Indication: COLITIS ULCERATIVE
     Route: 058
     Dates: start: 201002

REACTIONS (6)
  - Skin exfoliation [Unknown]
  - Rash pustular [Unknown]
  - Rash pruritic [Unknown]
  - Rash papular [Unknown]
  - Psoriasis [Unknown]
  - Psoriasis [Not Recovered/Not Resolved]
